FAERS Safety Report 4817740-2 (Version None)
Quarter: 2005Q3

REPORT INFORMATION
  Report Type: 
  Country: None (occurrence: None)
  Receive Date: 20050929
  Receipt Date: 20050728
  Transmission Date: 20060218
  Serious: No
  Sender: FDA-Public Use
  Company Number: 05P-163-0306995-00

PATIENT
  Age: 48 Year
  Sex: Female
  Weight: 71.2147 kg

DRUGS (4)
  1. HUMIRA [Suspect]
     Indication: RHEUMATOID ARTHRITIS
     Dosage: 40 MG, 1 IN 2 WK, SUBCUTANEOUS
     Route: 058
     Dates: start: 20050709, end: 20050723
  2. METHOTREXATE [Concomitant]
  3. CYMBOLTA [Concomitant]
  4. FOLIC ACID [Concomitant]

REACTIONS (4)
  - CONVULSION [None]
  - COUGH [None]
  - FEELING HOT [None]
  - LOSS OF CONSCIOUSNESS [None]
